FAERS Safety Report 5574274-8 (Version None)
Quarter: 2007Q4

REPORT INFORMATION
  Report Type: 
  Country: None (occurrence: None)
  Receive Date: 20071221
  Receipt Date: 20071221
  Transmission Date: 20080405
  Serious: Yes (Death)
  Sender: FDA-Public Use
  Company Number: None

PATIENT
  Age: 67 Year
  Sex: Male

DRUGS (1)
  1. SORAFENIB 200MG (BAYER) [Suspect]
     Indication: METASTATIC RENAL CELL CARCINOMA
     Dosage: 400MG PO QD
     Route: 048
     Dates: start: 20071025, end: 20071127

REACTIONS (2)
  - DISEASE PROGRESSION [None]
  - GENERAL PHYSICAL HEALTH DETERIORATION [None]
